FAERS Safety Report 14711186 (Version 1)
Quarter: 2018Q2

REPORT INFORMATION
  Report Type: Spontaneous
  Country: US (occurrence: US)
  Receive Date: 20180403
  Receipt Date: 20180403
  Transmission Date: 20180711
  Serious: Yes (Other)
  Sender: FDA-Public Use
  Company Number: US-TEIKOKU PHARMA USA-TPU2018-00198

PATIENT
  Age: 55 Year
  Sex: Female
  Weight: 77.18 kg

DRUGS (2)
  1. LIDOCAINE PATCH [Suspect]
     Active Substance: LIDOCAINE
     Indication: NEUROPATHY PERIPHERAL
     Dosage: APPLIES HALF A PATCH ON EACH FOOT FOR 12 HOURS ON AT BEDTIME, 12 HOURS OFF (PATIENT CUTS PATCH IN HA
     Route: 061
     Dates: start: 201606
  2. ASPERCREME NOS [Concomitant]
     Active Substance: MENTHOL\TROLAMINE SALICYLATE

REACTIONS (2)
  - Cerebrovascular accident [Unknown]
  - Bradyphrenia [Not Recovered/Not Resolved]

NARRATIVE: CASE EVENT DATE: 201706
